FAERS Safety Report 9854147 (Version 2)
Quarter: 2015Q4

REPORT INFORMATION
  Report Type: Report from Study
  Country: US (occurrence: US)
  Receive Date: 20140130
  Receipt Date: 20151110
  Transmission Date: 20160305
  Serious: Yes (Other)
  Sender: FDA-Public Use
  Company Number: US-ROCHE-1340340

PATIENT
  Age: 85 Year
  Sex: Female

DRUGS (2)
  1. LUCENTIS [Suspect]
     Active Substance: RANIBIZUMAB
     Indication: NEOVASCULAR AGE-RELATED MACULAR DEGENERATION
  2. LUCENTIS [Suspect]
     Active Substance: RANIBIZUMAB
     Indication: NEOVASCULAR AGE-RELATED MACULAR DEGENERATION
     Dosage: BOTH EYES
     Route: 050
     Dates: start: 2011

REACTIONS (6)
  - Hip fracture [Unknown]
  - Fall [Unknown]
  - Visual impairment [Unknown]
  - Wrist fracture [Unknown]
  - Upper limb fracture [Unknown]
  - Face injury [Unknown]

NARRATIVE: CASE EVENT DATE: 201104
